FAERS Safety Report 9782495 (Version 1)
Quarter: 2013Q4

REPORT INFORMATION
  Report Type: Spontaneous
  Country: MX (occurrence: MX)
  Receive Date: 20131226
  Receipt Date: 20131226
  Transmission Date: 20140711
  Serious: Yes (Other)
  Sender: FDA-Public Use
  Company Number: PHHY2013MX151964

PATIENT
  Age: 81 Year
  Sex: Female

DRUGS (3)
  1. TEGRETOL [Suspect]
     Indication: THYROID DISORDER
     Dosage: 1 DF (200 MG), DAILY
     Route: 048
  2. TEGRETOL [Suspect]
     Indication: OFF LABEL USE
  3. EUTIROX [Concomitant]
     Indication: THYROID DISORDER
     Dosage: UNK UKN, UNK
     Dates: start: 2003

REACTIONS (1)
  - Brain hypoxia [Not Recovered/Not Resolved]
